FAERS Safety Report 7797421-6 (Version None)
Quarter: 2011Q4

REPORT INFORMATION
  Report Type: 
  Country: None (occurrence: None)
  Receive Date: 20111005
  Receipt Date: 20110928
  Transmission Date: 20120403
  Serious: Yes (Other)
  Sender: FDA-Public Use
  Company Number: JP-B.I. PHARMACEUTICALS,INC./RIDGEFIELD-2011-BP-22266NB

PATIENT
  Sex: Male
  Weight: 65 kg

DRUGS (4)
  1. LIVALO [Suspect]
     Indication: HYPERLIPIDAEMIA
     Dosage: 1 MG
     Route: 048
  2. PLAVIX [Suspect]
     Indication: MYOCARDIAL INFARCTION
     Dosage: 75 MG
     Route: 048
  3. MICARDIS [Suspect]
     Indication: HYPERTENSION
     Route: 065
  4. ASPIRIN [Suspect]
     Indication: MYOCARDIAL INFARCTION
     Dosage: 100 MG
     Route: 048

REACTIONS (1)
  - PNEUMONIA [None]
